FAERS Safety Report 5144881-5 (Version None)
Quarter: 2006Q4

REPORT INFORMATION
  Report Type: 
  Country: None (occurrence: None)
  Receive Date: 20061107
  Receipt Date: 20061025
  Transmission Date: 20070319
  Serious: Yes (Hospitalization)
  Sender: FDA-Public Use
  Company Number: GBWYE332525OCT06

PATIENT
  Age: 58 Year
  Sex: Female
  Weight: 86 kg

DRUGS (4)
  1. ENBREL [Suspect]
     Indication: DRUG USE FOR UNKNOWN INDICATION
     Route: 058
     Dates: start: 20031215, end: 20060724
  2. METHOTREXATE [Suspect]
     Route: 048
     Dates: start: 20031101, end: 20060725
  3. FOLIC ACID [Concomitant]
     Route: 048
     Dates: start: 20031101
  4. OMEPRAZOLE [Concomitant]
     Indication: DYSPEPSIA
     Dosage: 20MG FREQUENCY UNSPECIFIED
     Route: 048
     Dates: start: 20040101

REACTIONS (2)
  - ARTHRITIS BACTERIAL [None]
  - JOINT ARTHROPLASTY [None]
